FAERS Safety Report 13183691 (Version 1)
Quarter: 2017Q1

REPORT INFORMATION
  Report Type: Spontaneous
  Country: US (occurrence: US)
  Receive Date: 20170203
  Receipt Date: 20170203
  Transmission Date: 20170428
  Serious: No
  Sender: FDA-Public Use
  Company Number: US-CELGENEUS-163-21660-11061079

PATIENT

DRUGS (2)
  1. GM-CSF [Concomitant]
     Active Substance: GRANULOCYTE-MACROPHAGE COLONY-STIMULATING FACTOR
     Indication: OVARIAN CANCER
     Dosage: 250 MICROGRAM
     Route: 065
  2. ABRAXANE [Suspect]
     Active Substance: PACLITAXEL
     Indication: OVARIAN CANCER
     Dosage: 100 MICROGRAM
     Route: 065

REACTIONS (13)
  - Fatigue [Unknown]
  - Vomiting [Unknown]
  - Urticaria [Unknown]
  - Alopecia [Unknown]
  - Hypokalaemia [Unknown]
  - Peripheral sensory neuropathy [Unknown]
  - Neutropenia [Unknown]
  - Leukopenia [Unknown]
  - Anaemia [Unknown]
  - Nausea [Unknown]
  - Lymphopenia [Unknown]
  - Diarrhoea [Unknown]
  - Hypoalbuminaemia [Unknown]
